FAERS Safety Report 9885816 (Version 1)
Quarter: 2014Q1

REPORT INFORMATION
  Report Type: Spontaneous
  Country: GB (occurrence: None)
  Receive Date: 20140206
  Receipt Date: 20140206
  Transmission Date: 20141002
  Serious: No
  Sender: FDA-Public Use
  Company Number: AUR-APL-2014-01274

PATIENT
  Age: 42 Year
  Sex: Male
  Weight: 123 kg

DRUGS (4)
  1. IRBESARTAN (IRBESARTAN) [Suspect]
     Indication: HYPERTENSION
     Route: 048
     Dates: start: 20131121, end: 20140101
  2. HUMALOG (INSULIN LISPRO) [Concomitant]
  3. LANTUS (INSULIN GLARGINE) [Concomitant]
  4. SIMVASTATIN (SIMVASTATIN) [Concomitant]

REACTIONS (1)
  - Hyperglycaemia [None]
